FAERS Safety Report 17006937 (Version 1)
Quarter: 2019Q4

REPORT INFORMATION
  Report Type: Spontaneous
  Country: US (occurrence: US)
  Receive Date: 20191107
  Receipt Date: 20191107
  Transmission Date: 20200122
  Serious: No
  Sender: FDA-Public Use
  Company Number: US-TEVA-2019-US-1133135

PATIENT
  Sex: Male

DRUGS (1)
  1. GUANFACINE HCL TEVA [Suspect]
     Active Substance: GUANFACINE HYDROCHLORIDE
     Dosage: 1 MG
     Route: 065

REACTIONS (2)
  - Behaviour disorder [Unknown]
  - Reaction to excipient [Unknown]
